FAERS Safety Report 19001665 (Version 1)
Quarter: 2021Q1

REPORT INFORMATION
  Report Type: Spontaneous
  Country: US (occurrence: US)
  Receive Date: 20210312
  Receipt Date: 20210312
  Transmission Date: 20210420
  Serious: No
  Sender: FDA-Public Use
  Company Number: US-FARMAPROD-202011-1562

PATIENT

DRUGS (3)
  1. OXERVATE [Suspect]
     Active Substance: CENEGERMIN-BKBJ
     Indication: NEUROTROPHIC KERATOPATHY
     Route: 047
  2. NEOMYCIN/ POLYMYXIN B/ DEXAMETHASONE [Concomitant]
  3. AMPHETAMINE TYPE STIMULANTS [Concomitant]

REACTIONS (1)
  - Corneal deposits [Not Recovered/Not Resolved]
